FAERS Safety Report 5067517-0 (Version None)
Quarter: 2006Q3

REPORT INFORMATION
  Report Type: 
  Country: None (occurrence: None)
  Receive Date: 20060727
  Receipt Date: 20060714
  Transmission Date: 20061208
  Serious: Yes (Other)
  Sender: FDA-Public Use
  Company Number: 2005133071

PATIENT
  Age: 27 Year
  Sex: Male

DRUGS (1)
  1. LYRICA [Suspect]
     Indication: COMPLEX REGIONAL PAIN SYNDROME
     Dosage: 150 MG (75 MG, 2 IN 1 D),ORAL
     Route: 048
     Dates: start: 20050720, end: 20050802

REACTIONS (3)
  - PALPITATIONS [None]
  - RASH [None]
  - TACHYCARDIA [None]
